FAERS Safety Report 24834264 (Version 1)
Quarter: 2025Q1

REPORT INFORMATION
  Report Type: Spontaneous
  Country: CN (occurrence: CN)
  Receive Date: 20250113
  Receipt Date: 20250113
  Transmission Date: 20250409
  Serious: Yes (Other)
  Sender: BEIGENE
  Company Number: CN-GILEAD-2022-0597069

PATIENT

DRUGS (5)
  1. BRUKINSA [Suspect]
     Active Substance: ZANUBRUTINIB
     Indication: Non-Hodgkin^s lymphoma
  2. FLUDARABINE [Suspect]
     Active Substance: FLUDARABINE PHOSPHATE
     Indication: Non-Hodgkin^s lymphoma
  3. AXICABTAGENE CILOLEUCEL [Suspect]
     Active Substance: AXICABTAGENE CILOLEUCEL
     Indication: Non-Hodgkin^s lymphoma
  4. CYCLOPHOSPHAMIDE [Suspect]
     Active Substance: CYCLOPHOSPHAMIDE
     Indication: Non-Hodgkin^s lymphoma
  5. METHYLPREDNISOLONE SODIUM PHOSPHATE [Concomitant]
     Active Substance: METHYLPREDNISOLONE SODIUM PHOSPHATE

REACTIONS (27)
  - White blood cell count decreased [Unknown]
  - Neutrophil count decreased [Unknown]
  - Cytokine increased [Unknown]
  - Platelet count decreased [Unknown]
  - Chest discomfort [Unknown]
  - Cytokine release syndrome [Unknown]
  - Serum ferritin increased [Unknown]
  - Gamma-glutamyltransferase increased [Unknown]
  - Asthenia [Unknown]
  - C-reactive protein increased [Unknown]
  - Weight decreased [Unknown]
  - Hypoalbuminaemia [Unknown]
  - N-terminal prohormone brain natriuretic peptide increased [Unknown]
  - Blood bilirubin increased [Unknown]
  - Lymphocyte count decreased [Unknown]
  - Blood immunoglobulin G decreased [Unknown]
  - Anaemia [Unknown]
  - Oedema peripheral [Unknown]
  - Alanine aminotransferase increased [Unknown]
  - Hypokalaemia [Unknown]
  - Herpes zoster [Unknown]
  - Hypomagnesaemia [Unknown]
  - Blood alkaline phosphatase increased [Unknown]
  - Decreased appetite [Unknown]
  - Aspartate aminotransferase increased [Unknown]
  - Hypocalcaemia [Unknown]
  - Hypophosphataemia [Unknown]

NARRATIVE: CASE EVENT DATE: 20220606
